FAERS Safety Report 10225400 (Version 1)
Quarter: 2014Q1

REPORT INFORMATION
  Report Type: Spontaneous
  Country: US (occurrence: None)
  Receive Date: 20140306
  Receipt Date: 20140306
  Transmission Date: 20141002
  Serious: Yes (Other)
  Sender: FDA-Public Use
  Company Number: 163-21880-13092153

PATIENT
  Age: 63 Year
  Sex: Female
  Weight: 108.86 kg

DRUGS (1)
  1. REVLIMID [Suspect]
     Indication: LYMPHOMA
     Route: 048
     Dates: start: 20130816, end: 2013

REACTIONS (7)
  - Headache [None]
  - Neck pain [None]
  - Drug intolerance [None]
  - Eye disorder [None]
  - Pruritus [None]
  - Muscle spasms [None]
  - Swelling face [None]
